FAERS Safety Report 25939104 (Version 2)
Quarter: 2025Q4

REPORT INFORMATION
  Report Type: Spontaneous
  Country: EU (occurrence: EU)
  Receive Date: 20251020
  Receipt Date: 20251110
  Transmission Date: 20260117
  Serious: Yes (Other)
  Sender: ABBVIE
  Company Number: EU-ABBVIE-6504627

PATIENT
  Age: 52 Year
  Sex: Male

DRUGS (4)
  1. ADALIMUMAB [Suspect]
     Active Substance: ADALIMUMAB
     Indication: Psoriasis
     Route: 058
     Dates: start: 201510, end: 2017
  2. ACITRETIN [Concomitant]
     Active Substance: ACITRETIN
     Indication: Product used for unknown indication
     Route: 048
     Dates: start: 2017
  3. SECUKINUMAB [Suspect]
     Active Substance: SECUKINUMAB
     Indication: Psoriasis
     Route: 065
     Dates: start: 201710, end: 202012
  4. IXEKIZUMAB [Suspect]
     Active Substance: IXEKIZUMAB
     Indication: Psoriasis
     Route: 048
     Dates: start: 202012, end: 202507

REACTIONS (8)
  - Neoplasm [Unknown]
  - Hyperkeratosis [Unknown]
  - Oedema peripheral [Unknown]
  - Pain in extremity [Unknown]
  - Pain [Unknown]
  - Erythema [Unknown]
  - Anal fistula [Unknown]
  - Herpes zoster [Unknown]

NARRATIVE: CASE EVENT DATE: 20170101
